FAERS Safety Report 14063355 (Version 3)
Quarter: 2017Q4

REPORT INFORMATION
  Report Type: Report from Study
  Country: DE (occurrence: DE)
  Receive Date: 20171009
  Receipt Date: 20171116
  Transmission Date: 20180321
  Serious: Yes (Hospitalization, Other)
  Sender: FDA-Public Use
  Company Number: PHHY2016DE115692

PATIENT
  Sex: Male
  Weight: 69 kg

DRUGS (9)
  1. INSULIN [Concomitant]
     Active Substance: INSULIN NOS
     Indication: DIABETES MELLITUS
     Dosage: UNK UNK, (SEVERAL TIMES DAILY)
     Route: 058
     Dates: start: 2014
  2. DESFERAL [Suspect]
     Active Substance: DEFEROXAMINE MESYLATE
     Indication: IRON OVERLOAD
     Dosage: 100 ML (2-5 INFUSIONS/WEEK), 20 MG/KG BW/DAY
     Route: 042
     Dates: start: 20160622, end: 20160711
  3. DESFERAL [Suspect]
     Active Substance: DEFEROXAMINE MESYLATE
     Dosage: 100 ML (2-5 INFUSIONS/WEEK), 20 MG/KG BW/DAY
     Route: 042
     Dates: start: 20170502, end: 20170622
  4. RAMIPRIL. [Concomitant]
     Active Substance: RAMIPRIL
     Indication: HYPERTENSION
     Dosage: 2.5 MG, QD (1-0-0)
     Route: 065
  5. DESFERAL [Suspect]
     Active Substance: DEFEROXAMINE MESYLATE
     Dosage: 100 ML (2-5 INFUSIONS/WEEK), 20 MG/KG BW/DAY
     Route: 042
     Dates: start: 20160718, end: 20160810
  6. DESFERAL [Suspect]
     Active Substance: DEFEROXAMINE MESYLATE
     Dosage: 100 ML (2-5 INFUSIONS/WEEK), 20 MG/KG BW/DAY
     Route: 042
     Dates: start: 20161103, end: 20170223
  7. DESFERAL [Suspect]
     Active Substance: DEFEROXAMINE MESYLATE
     Dosage: 100 ML (2-5 INFUSIONS/WEEK), 40 MG/KG BW/DAY
     Route: 042
     Dates: start: 20170224, end: 20170318
  8. PANTOPRAZOL [Concomitant]
     Active Substance: PANTOPRAZOLE SODIUM
     Indication: PRODUCT USED FOR UNKNOWN INDICATION
     Dosage: 20 MG, BID
     Route: 065
     Dates: start: 2014
  9. DESFERAL [Suspect]
     Active Substance: DEFEROXAMINE MESYLATE
     Dosage: 100 ML (2-5 INFUSIONS/WEEK), 20 MG/KG BW/DAY
     Route: 042
     Dates: start: 20170327, end: 20170412

REACTIONS (5)
  - Pneumonia [Recovered/Resolved]
  - Device related infection [Recovered/Resolved]
  - Haematoma [Recovered/Resolved]
  - Device related infection [Recovered/Resolved]
  - Visual impairment [Recovered/Resolved]

NARRATIVE: CASE EVENT DATE: 20160811
